FAERS Safety Report 23167384 (Version 1)
Quarter: 2023Q4

REPORT INFORMATION
  Report Type: Spontaneous
  Country: JP (occurrence: JP)
  Receive Date: 20231109
  Receipt Date: 20231109
  Transmission Date: 20240109
  Serious: Yes (Life-Threatening, Hospitalization, Other)
  Sender: FDA-Public Use
  Company Number: JP-ONO-2023JP027439

PATIENT
  Age: 54 Year
  Sex: Female
  Weight: 49 kg

DRUGS (1)
  1. OPDIVO [Suspect]
     Active Substance: NIVOLUMAB
     Indication: Metastases to peritoneum
     Dosage: 480 MG, NO : OF ADMINSITARTIONS:18
     Route: 041
     Dates: start: 20200519, end: 20230516

REACTIONS (2)
  - Immune-mediated adrenal insufficiency [Recovering/Resolving]
  - Off label use [Unknown]

NARRATIVE: CASE EVENT DATE: 20200519
